FAERS Safety Report 7290898-4 (Version None)
Quarter: 2011Q1

REPORT INFORMATION
  Report Type: 
  Country: None (occurrence: None)
  Receive Date: 20110214
  Receipt Date: 20110203
  Transmission Date: 20110831
  Serious: Yes (Hospitalization)
  Sender: FDA-Public Use
  Company Number: US-ASTRAZENECA-2011SE04121

PATIENT
  Age: 42 Year
  Sex: Male
  Weight: 113.4 kg

DRUGS (13)
  1. ESOMEPRAZOLE [Concomitant]
  2. SIMVASTATIN [Concomitant]
  3. SEROQUEL [Suspect]
     Indication: BIPOLAR DISORDER
     Route: 048
  4. HYDROCODONE [Concomitant]
  5. NABUMETONE [Concomitant]
  6. SEROQUEL [Suspect]
     Dosage: TAKING HALF HIS DOSE
     Route: 048
  7. LISINOPRIL [Concomitant]
  8. HYDRO OXYZINE PAM [Concomitant]
  9. METHOCARBEMOL [Concomitant]
  10. CARVEDILOL [Concomitant]
  11. MELOXICAM [Concomitant]
  12. OXCARBAZEPINE [Concomitant]
  13. VENLAFAXINE [Concomitant]

REACTIONS (12)
  - MALAISE [None]
  - SLUGGISHNESS [None]
  - DRUG DOSE OMISSION [None]
  - NAUSEA [None]
  - ABDOMINAL PAIN UPPER [None]
  - CHEST PAIN [None]
  - PARAMNESIA [None]
  - INSOMNIA [None]
  - INCORRECT DOSE ADMINISTERED [None]
  - CARDIAC DISORDER [None]
  - WEIGHT DECREASED [None]
  - JOINT SPRAIN [None]
